FAERS Safety Report 7446622-5 (Version None)
Quarter: 2011Q2

REPORT INFORMATION
  Report Type: 
  Country: None (occurrence: None)
  Receive Date: 20110429
  Receipt Date: 20110427
  Transmission Date: 20111010
  Serious: Yes (Life-Threatening, Other)
  Sender: FDA-Public Use
  Company Number: PHHY2011GB05667

PATIENT
  Age: 79 Year
  Sex: Female
  Weight: 72 kg

DRUGS (5)
  1. ABATACEPT [Suspect]
     Route: 042
     Dates: start: 20050101
  2. METOPROLOL [Concomitant]
     Indication: MYOCARDIAL ISCHAEMIA
     Dosage: UNK UKN, UNK
     Route: 048
  3. METHOTREXATE [Suspect]
     Indication: RHEUMATOID ARTHRITIS
     Dosage: 5 MG, UNK
     Route: 048
  4. ADCAL [Concomitant]
     Dosage: 1.5 G, UNK
  5. ASPIRIN [Concomitant]
     Indication: MYOCARDIAL ISCHAEMIA
     Dosage: 7.5 MG/DAY
     Route: 048

REACTIONS (3)
  - BRONCHIAL CARCINOMA [None]
  - METASTASIS [None]
  - LUNG ADENOCARCINOMA METASTATIC [None]
